FAERS Safety Report 10583714 (Version 2)
Quarter: 2015Q1

REPORT INFORMATION
  Report Type: Report from Study
  Country: DE (occurrence: None)
  Receive Date: 20141112
  Receipt Date: 20150115
  Transmission Date: 20150720
  Serious: Yes (Life-Threatening)
  Sender: FDA-Public Use
  Company Number: 2014-DE-014714

PATIENT
  Age: 34 Year
  Sex: Female
  Weight: 40.37 kg

DRUGS (8)
  1. PROGESTERONE (PROGESTERONE) [Concomitant]
  2. L-THYROXIN (LEVOTHYROXINE SODIUM) [Concomitant]
  3. MCP TROPFEN (METOCLOPRAMIDE HYDROCHLORIDE) [Concomitant]
  4. XYREM [Suspect]
     Active Substance: SODIUM OXYBATE
     Indication: NARCOLEPSY
     Route: 048
     Dates: start: 20101028, end: 20130718
  5. AMLODIPIN (AMLODIPINE BESILATE) [Concomitant]
  6. IBUPROFEN (IBUPROFEN SODIUM) [Concomitant]
  7. BISOPROLOL (BISOPROLOL FUMARATE W/HYDROCHLOROTHIAZIDE) [Concomitant]
  8. NOVAMINSULFON (METAMIZOLE SODIUM) [Concomitant]
     Active Substance: METAMIZOLE SODIUM

REACTIONS (3)
  - Somnambulism [None]
  - Apparent life threatening event [None]
  - Abnormal sleep-related event [None]

NARRATIVE: CASE EVENT DATE: 201301
